FAERS Safety Report 4713545-1 (Version None)
Quarter: 2005Q3

REPORT INFORMATION
  Report Type: 
  Country: None (occurrence: None)
  Receive Date: 20050711
  Receipt Date: 20050627
  Transmission Date: 20060218
  Serious: Yes (Death, Life-Threatening, Hospitalization)
  Sender: FDA-Public Use
  Company Number: 2005EU000961

PATIENT
  Age: 44 Year
  Sex: Female

DRUGS (9)
  1. FK506 (TACROLIMUS) CAPSULE [Suspect]
     Indication: LIVER TRANSPLANT
     Dosage: 2.00 MG, UID/QD, ORAL
     Route: 048
     Dates: start: 20050420
  2. DACLIZUMAB (DACLIZUMAB) [Suspect]
     Indication: LIVER TRANSPLANT
     Dosage: 100.00 MG, IV NOS
     Route: 042
     Dates: start: 20050415, end: 20050422
  3. MYCOPHENOLATE MOFETIL (MYCOPHENOLATE MOFETIL) [Suspect]
     Indication: LIVER TRANSPLANT
     Dosage: SEE IMAGE
     Dates: start: 20050415, end: 20050419
  4. MYCOPHENOLATE MOFETIL (MYCOPHENOLATE MOFETIL) [Suspect]
     Indication: LIVER TRANSPLANT
     Dosage: SEE IMAGE
     Dates: start: 20050420
  5. HYDROCORTISONE [Suspect]
     Indication: LIVER TRANSPLANT
     Dosage: 100.00 MG, UID/QD,
     Dates: start: 20050415
  6. PREDNISONE [Suspect]
     Indication: LIVER TRANSPLANT
     Dosage: 10.00 MG, UID/QD,
     Dates: start: 20050418
  7. TAZOCIN (PIPERACILLIN SODIUM, TAZOBACTAM SODIUM) [Concomitant]
  8. FLUCONAZOLE [Concomitant]
  9. CALCIUM CHLORIDE ^SPOFA^ (CALCIUM CHLORIDE HEXAHYDRATE) [Concomitant]

REACTIONS (10)
  - ASCITES INFECTION [None]
  - ENTEROCOCCAL INFECTION [None]
  - ESCHERICHIA INFECTION [None]
  - NEUTROPHIL COUNT DECREASED [None]
  - OEDEMA PERIPHERAL [None]
  - PLEURAL EFFUSION [None]
  - RENAL IMPAIRMENT [None]
  - SKIN LACERATION [None]
  - SMALL INTESTINAL HAEMORRHAGE [None]
  - WOUND SECRETION [None]
